FAERS Safety Report 8193137-5 (Version None)
Quarter: 2012Q1

REPORT INFORMATION
  Report Type: 
  Country: None (occurrence: None)
  Receive Date: 20120308
  Receipt Date: 20120305
  Transmission Date: 20120608
  Serious: No
  Sender: FDA-Public Use
  Company Number: US-PFIZER INC-2012058675

PATIENT
  Sex: Female
  Weight: 58.957 kg

DRUGS (2)
  1. IBUPROFEN (ADVIL) [Suspect]
     Dosage: 400 MG, DAILY
     Route: 048
  2. IBUPROFEN (ADVIL) [Suspect]
     Indication: DYSMENORRHOEA
     Dosage: 200 MG, DAILY
     Route: 048

REACTIONS (1)
  - LIP SWELLING [None]
